FAERS Safety Report 9767934 (Version 1)
Quarter: 2013Q4

REPORT INFORMATION
  Report Type: Spontaneous
  Country: US (occurrence: US)
  Receive Date: 20131217
  Receipt Date: 20131217
  Transmission Date: 20140711
  Serious: No
  Sender: FDA-Public Use
  Company Number: US-BAYER-2013-154309

PATIENT
  Sex: 0

DRUGS (3)
  1. ALEVE CAPLET [Suspect]
     Indication: MYALGIA
  2. TYLENOL [PARACETAMOL] [Suspect]
  3. VALIUM [Suspect]

REACTIONS (1)
  - Drug ineffective [None]
